FAERS Safety Report 12931356 (Version 1)
Quarter: 2016Q4

REPORT INFORMATION
  Report Type: Spontaneous
  Country: US (occurrence: US)
  Receive Date: 20161110
  Receipt Date: 20161110
  Transmission Date: 20170207
  Serious: No
  Sender: FDA-Public Use
  Company Number: US-JAZZ-2016-US-017856

PATIENT
  Sex: Male

DRUGS (27)
  1. XYREM [Suspect]
     Active Substance: SODIUM OXYBATE
     Indication: NARCOLEPSY
     Dosage: 2.25 G, BID
     Route: 048
     Dates: start: 201502, end: 201503
  2. HYDROCHLOROTHIAZIDE. [Concomitant]
     Active Substance: HYDROCHLOROTHIAZIDE
  3. FUROSEMIDE. [Concomitant]
     Active Substance: FUROSEMIDE
  4. CAVERJECT [Concomitant]
     Active Substance: ALPROSTADIL
  5. NYSTATIN. [Concomitant]
     Active Substance: NYSTATIN
  6. PRILOSEC [Concomitant]
     Active Substance: OMEPRAZOLE MAGNESIUM
  7. NITROGLYCERIN. [Concomitant]
     Active Substance: NITROGLYCERIN
  8. HUMULIN R [Concomitant]
     Active Substance: INSULIN HUMAN
  9. VITAMIN B12 [Concomitant]
     Active Substance: CYANOCOBALAMIN
  10. ADVIL [Concomitant]
     Active Substance: IBUPROFEN
  11. ATENOLOL. [Concomitant]
     Active Substance: ATENOLOL
  12. MAGIC MOUTHWASH [Concomitant]
     Active Substance: DIPHENHYDRAMINE HYDROCHLORIDE\LIDOCAINE HYDROCHLORIDE\NYSTATIN
  13. SPIRONOLACTONE. [Concomitant]
     Active Substance: SPIRONOLACTONE
  14. MIRAPEX [Concomitant]
     Active Substance: PRAMIPEXOLE DIHYDROCHLORIDE
  15. NOVOLOG [Concomitant]
     Active Substance: INSULIN ASPART
  16. CLONAZEPAM. [Concomitant]
     Active Substance: CLONAZEPAM
  17. GABAPENTIN. [Concomitant]
     Active Substance: GABAPENTIN
  18. HUMALOG [Concomitant]
     Active Substance: INSULIN LISPRO
  19. PROVIGIL [Concomitant]
     Active Substance: MODAFINIL
  20. POTASSIUM CL [Concomitant]
     Active Substance: POTASSIUM CHLORIDE
  21. ASPIRIN. [Concomitant]
     Active Substance: ASPIRIN
  22. TESTOSTERONE CYPIONATE. [Concomitant]
     Active Substance: TESTOSTERONE CYPIONATE
  23. CRESTOR [Concomitant]
     Active Substance: ROSUVASTATIN CALCIUM
  24. XYREM [Suspect]
     Active Substance: SODIUM OXYBATE
     Dosage: 3 G, BID
     Route: 048
     Dates: start: 201503
  25. NEURONTIN [Concomitant]
     Active Substance: GABAPENTIN
  26. VALTREX [Concomitant]
     Active Substance: VALACYCLOVIR HYDROCHLORIDE
  27. ZAROXOLYN [Concomitant]
     Active Substance: METOLAZONE

REACTIONS (6)
  - Therapeutic response unexpected [Unknown]
  - Burning sensation [Unknown]
  - Glossodynia [Unknown]
  - Oral disorder [Unknown]
  - Oral pain [Unknown]
  - Pre-existing condition improved [Unknown]
